FAERS Safety Report 6383002-8 (Version None)
Quarter: 2009Q3

REPORT INFORMATION
  Report Type: 
  Country: None (occurrence: None)
  Receive Date: 20090930
  Receipt Date: 20090923
  Transmission Date: 20100115
  Serious: Yes (Hospitalization)
  Sender: FDA-Public Use
  Company Number: US-GENENTECH-290050

PATIENT
  Sex: Male

DRUGS (17)
  1. RITUXIMAB [Suspect]
     Indication: NON-HODGKIN'S LYMPHOMA
     Dosage: 705 MG, Q21D
     Route: 042
     Dates: start: 20090818
  2. METHOTREXATE [Suspect]
     Indication: NON-HODGKIN'S LYMPHOMA
     Dosage: 188 MG, Q21D
     Route: 042
     Dates: start: 20090818
  3. ADVAIR DISKUS 100/50 [Concomitant]
     Indication: DRUG USE FOR UNKNOWN INDICATION
  4. AMIODARONE HCL [Concomitant]
     Indication: DRUG USE FOR UNKNOWN INDICATION
  5. ASPIRIN [Concomitant]
     Indication: DRUG USE FOR UNKNOWN INDICATION
  6. COREG [Concomitant]
     Indication: DRUG USE FOR UNKNOWN INDICATION
  7. CLONAZEPAM [Concomitant]
     Indication: DRUG USE FOR UNKNOWN INDICATION
  8. FENTANYL [Concomitant]
     Indication: DRUG USE FOR UNKNOWN INDICATION
  9. FIORICET [Concomitant]
     Indication: DRUG USE FOR UNKNOWN INDICATION
  10. ARIXTRA [Concomitant]
     Indication: DRUG USE FOR UNKNOWN INDICATION
  11. GABAPENTIN [Concomitant]
     Indication: DRUG USE FOR UNKNOWN INDICATION
  12. DILAUDID [Concomitant]
     Indication: DRUG USE FOR UNKNOWN INDICATION
  13. LACTULOSE [Concomitant]
     Indication: DRUG USE FOR UNKNOWN INDICATION
  14. REME-T [Concomitant]
     Indication: DRUG USE FOR UNKNOWN INDICATION
  15. RHNGF [Concomitant]
     Indication: DRUG USE FOR UNKNOWN INDICATION
  16. PRAVASTATIN [Concomitant]
     Indication: DRUG USE FOR UNKNOWN INDICATION
  17. SENOKOT [Concomitant]
     Indication: DRUG USE FOR UNKNOWN INDICATION

REACTIONS (3)
  - ANAEMIA [None]
  - PLEURAL EFFUSION [None]
  - RESPIRATORY FAILURE [None]
